FAERS Safety Report 8535032 (Version 5)
Quarter: 2013Q1

REPORT INFORMATION
  Report Type: Spontaneous
  Country: US (occurrence: US)
  Receive Date: 20120427
  Receipt Date: 20130319
  Transmission Date: 20140127
  Serious: Yes (Other)
  Sender: FDA-Public Use
  Company Number: US-PFIZER INC-2012103917

PATIENT
  Age: 75 Year
  Sex: Male
  Weight: 116 kg

DRUGS (12)
  1. REVATIO [Suspect]
     Indication: PULMONARY ARTERIAL HYPERTENSION
     Dosage: 40 MG, 3X/DAY
     Route: 048
     Dates: start: 20110527
  2. REVATIO [Suspect]
     Indication: CHRONIC OBSTRUCTIVE PULMONARY DISEASE
     Dosage: 20 MG, TWO TABLETS 3X/DAY
     Route: 048
  3. REVATIO [Suspect]
     Indication: PULMONARY HYPERTENSION
  4. TYVASO [Concomitant]
     Dosage: 2 PUFFS 4X/DAY
  5. LORCET [Concomitant]
     Dosage: 10/65 TWICE DAILY
  6. FLOMAX [Concomitant]
     Dosage: UNK
  7. MAALOX [Concomitant]
     Dosage: UNK
  8. COUMADINE [Concomitant]
     Dosage: UNK
  9. POTASSIUM [Concomitant]
     Dosage: 20 MEQ, UNK
  10. ACETYLSALICYLIC ACID [Concomitant]
     Dosage: 40 (UNITS UNKNOWN), 2X/DAY
  11. XANAX [Concomitant]
     Dosage: UNK
  12. TRACLEER [Concomitant]
     Indication: LUNG DISORDER
     Dosage: 125 MG, 2X/DAY

REACTIONS (15)
  - Splenomegaly [Unknown]
  - Visual impairment [Unknown]
  - Dyspnoea paroxysmal nocturnal [Unknown]
  - Epistaxis [Unknown]
  - Chest pain [Unknown]
  - Dyspnoea [Unknown]
  - Bronchitis [Recovering/Resolving]
  - Nasopharyngitis [Recovering/Resolving]
  - Fatigue [Unknown]
  - Asthenia [Unknown]
  - Weight increased [Unknown]
  - Weight decreased [Unknown]
  - Headache [Unknown]
  - Back pain [Unknown]
  - Off label use [Unknown]
